FAERS Safety Report 12746306 (Version 1)
Quarter: 2016Q3

REPORT INFORMATION
  Report Type: Spontaneous
  Country: US (occurrence: US)
  Receive Date: 20160915
  Receipt Date: 20160915
  Transmission Date: 20161109
  Serious: No
  Sender: FDA-Public Use
  Company Number: US-DRREDDYS-USA/USA/15/0054183

PATIENT
  Age: 36 Year
  Sex: Female

DRUGS (3)
  1. GEMCITABINE [Suspect]
     Active Substance: GEMCITABINE\GEMCITABINE HYDROCHLORIDE
     Indication: OFF LABEL USE
  2. DOCETAXEL. [Suspect]
     Active Substance: DOCETAXEL
     Indication: FOLLICULAR DENDRITIC CELL SARCOMA
     Route: 065
  3. GEMCITABINE [Suspect]
     Active Substance: GEMCITABINE\GEMCITABINE HYDROCHLORIDE
     Indication: FOLLICULAR DENDRITIC CELL SARCOMA
     Route: 065

REACTIONS (3)
  - Fatigue [Unknown]
  - Therapy partial responder [Unknown]
  - Off label use [Unknown]
